FAERS Safety Report 11715634 (Version 3)
Quarter: 2015Q4

REPORT INFORMATION
  Report Type: Spontaneous
  Country: US (occurrence: US)
  Receive Date: 20151109
  Receipt Date: 20151204
  Transmission Date: 20160304
  Serious: Yes (Other)
  Sender: FDA-Public Use
  Company Number: US-JNJFOC-20151103129

PATIENT
  Sex: Female

DRUGS (3)
  1. COGENTIN [Concomitant]
     Active Substance: BENZTROPINE MESYLATE
     Indication: TREMOR
     Route: 065
  2. INVEGA TRINZA [Suspect]
     Active Substance: PALIPERIDONE PALMITATE
     Indication: SCHIZOPHRENIA
     Route: 030
     Dates: start: 20150807
  3. TRAZODONE [Concomitant]
     Active Substance: TRAZODONE HYDROCHLORIDE
     Indication: SLEEP DISORDER
     Dosage: BED TIME.
     Route: 065

REACTIONS (4)
  - Depression [Recovered/Resolved]
  - Off label use [Unknown]
  - Product use issue [Unknown]
  - Suicidal ideation [Recovered/Resolved]
